FAERS Safety Report 6047990-1 (Version None)
Quarter: 2009Q1

REPORT INFORMATION
  Report Type: 
  Country: None (occurrence: None)
  Receive Date: 20090123
  Receipt Date: 20090119
  Transmission Date: 20090719
  Serious: Yes (Hospitalization)
  Sender: FDA-Public Use
  Company Number: PHHY2009DE02234

PATIENT
  Sex: Female

DRUGS (7)
  1. RASILEZ [Suspect]
     Indication: HYPERTENSION
     Dosage: 150 MG, QD
     Dates: start: 20081103, end: 20081203
  2. TRAMADOL HCL [Concomitant]
     Dosage: 0.5 DF, QD
  3. BISOPROLOL RATIOPHARM [Concomitant]
     Dosage: 5 MG, BID
  4. AMLODIPIN ^ORIFARM^ [Concomitant]
     Dosage: 5 MG, BID
  5. BENAZEPRIL HYDROCHLORIDE [Concomitant]
     Dosage: 10 MG, BID
  6. HCT ^CT-ARZNEIMITTEL^ [Concomitant]
     Dosage: 25 MG, QD
  7. ALLOPURINOL [Concomitant]
     Dosage: 300 MG, QD

REACTIONS (12)
  - DYSPNOEA [None]
  - FIBRIN D DIMER INCREASED [None]
  - HYPERVENTILATION [None]
  - HYPOXIA [None]
  - LEUKOCYTOCLASTIC VASCULITIS [None]
  - LUNG INFILTRATION [None]
  - NORMOCHROMIC NORMOCYTIC ANAEMIA [None]
  - PETECHIAE [None]
  - PNEUMONIA [None]
  - PULMONARY CONGESTION [None]
  - PULMONARY EMBOLISM [None]
  - RASH [None]
